FAERS Safety Report 13798012 (Version 2)
Quarter: 2017Q3

REPORT INFORMATION
  Report Type: Spontaneous
  Country: US (occurrence: US)
  Receive Date: 20170727
  Receipt Date: 20170811
  Transmission Date: 20171127
  Serious: No
  Sender: FDA-Public Use
  Company Number: US-PFIZER INC-2017320153

PATIENT
  Age: 57 Year
  Sex: Female

DRUGS (2)
  1. SYNTHROID [Concomitant]
     Active Substance: LEVOTHYROXINE SODIUM
     Dosage: UNK
  2. KERYDIN [Suspect]
     Active Substance: TAVABOROLE
     Indication: ONYCHOMYCOSIS
     Dosage: 5% SOLUTION, APPLIED A SMALL DROP DAILY WITH A DROPPER TO TOE NAIL
     Route: 061
     Dates: start: 20170616, end: 20170705

REACTIONS (2)
  - Burning sensation [Recovered/Resolved with Sequelae]
  - Onychalgia [Recovered/Resolved with Sequelae]

NARRATIVE: CASE EVENT DATE: 20170704
